FAERS Safety Report 18763075 (Version 1)
Quarter: 2021Q1

REPORT INFORMATION
  Report Type: Spontaneous
  Country: US (occurrence: US)
  Receive Date: 20210120
  Receipt Date: 20210120
  Transmission Date: 20210419
  Serious: No
  Sender: FDA-Public Use
  Company Number: None

PATIENT
  Age: 21 Year
  Sex: Female
  Weight: 64.35 kg

DRUGS (7)
  1. LOESTRIN NOS [Suspect]
     Active Substance: ETHINYL ESTRADIOL\NORETHINDRONE ACETATE
     Indication: ACNE
     Route: 048
     Dates: start: 20160705, end: 20170213
  2. LOESTRIN FE 1/20 [Concomitant]
     Active Substance: ETHINYL ESTRADIOL\NORETHINDRONE ACETATE
     Dates: start: 20160705, end: 20170213
  3. AVIANE 0.1?20 [Concomitant]
     Dates: start: 20170216, end: 20170601
  4. AVIANE [Suspect]
     Active Substance: ETHINYL ESTRADIOL\LEVONORGESTREL
     Indication: PRODUCT USED FOR UNKNOWN INDICATION
     Route: 048
     Dates: start: 20170216, end: 20170601
  5. LOESTRIN NOS [Suspect]
     Active Substance: ETHINYL ESTRADIOL\NORETHINDRONE ACETATE
     Indication: POLYCYSTIC OVARIES
     Route: 048
     Dates: start: 20160705, end: 20170213
  6. PROVERA [Concomitant]
     Active Substance: MEDROXYPROGESTERONE ACETATE
     Dates: start: 20160616, end: 20170601
  7. OCELLA 3?0.03MG [Concomitant]
     Dates: start: 20170213, end: 20170220

REACTIONS (1)
  - Acne [None]
